FAERS Safety Report 15304701 (Version 1)
Quarter: 2018Q3

REPORT INFORMATION
  Report Type: Spontaneous
  Country: US (occurrence: US)
  Receive Date: 20180809
  Receipt Date: 20180809
  Transmission Date: 20181010
  Serious: Yes (Hospitalization)
  Sender: FDA-Public Use
  Company Number: None

PATIENT
  Sex: Female

DRUGS (8)
  1. LONSURF [Suspect]
     Active Substance: TIPIRACIL HYDROCHLORIDE\TRIFLURIDINE
     Indication: RECTAL CANCER
     Dosage: ?          OTHER FREQUENCY:DAYS1?5AND8?12;?
     Route: 048
     Dates: start: 20180524
  2. TOUJRO [Concomitant]
  3. ELIQUIS [Concomitant]
     Active Substance: APIXABAN
  4. LISINOPRIL. [Concomitant]
     Active Substance: LISINOPRIL
  5. NEULASTA [Suspect]
     Active Substance: PEGFILGRASTIM
     Dosage: ?          OTHER FREQUENCY:Q 28 DAY CYCLE;?
     Route: 058
     Dates: start: 20180709
  6. CALCIUM??METFORMIN [Concomitant]
  7. CIPRO [Concomitant]
     Active Substance: CIPROFLOXACIN HYDROCHLORIDE
  8. HUMALOG [Suspect]
     Active Substance: INSULIN LISPRO

REACTIONS (1)
  - Intestinal obstruction [None]
